FAERS Safety Report 5620147-1 (Version None)
Quarter: 2008Q1

REPORT INFORMATION
  Report Type: 
  Country: None (occurrence: None)
  Receive Date: 20080208
  Receipt Date: 20080131
  Transmission Date: 20080703
  Serious: Yes (Other)
  Sender: FDA-Public Use
  Company Number: CH-ROCHE-473684

PATIENT
  Sex: Male
  Weight: 3 kg

DRUGS (2)
  1. ROACCUTAN GEL [Suspect]
     Indication: ACNE
     Dates: end: 20061114
  2. ERYTHROMYCIN [Concomitant]
     Dates: end: 20061114

REACTIONS (2)
  - NO ADVERSE EVENT [None]
  - NORMAL NEWBORN [None]
